FAERS Safety Report 13081925 (Version 1)
Quarter: 2017Q1

REPORT INFORMATION
  Report Type: Report from Study
  Country: EC (occurrence: EC)
  Receive Date: 20170103
  Receipt Date: 20170103
  Transmission Date: 20170428
  Serious: Yes (Other)
  Sender: FDA-Public Use
  Company Number: PHHY2016EC135772

PATIENT
  Age: 74 Year
  Sex: Male
  Weight: 74 kg

DRUGS (9)
  1. EXJADE [Suspect]
     Active Substance: DEFERASIROX
     Dosage: 500 MG, QD
     Route: 048
     Dates: start: 20160926, end: 20161222
  2. DANODIOL [Concomitant]
     Indication: CARDIAC DISORDER
     Dosage: UNK UNK, QD
     Route: 065
  3. CONTIFLO [Concomitant]
     Active Substance: TAMSULOSIN
     Indication: PROSTATITIS
     Dosage: UNK UNK, QD
     Route: 065
  4. EXJADE [Suspect]
     Active Substance: DEFERASIROX
     Dosage: 1000 MG, QD
     Route: 048
     Dates: start: 20160107, end: 20160925
  5. CONCORD [Concomitant]
     Indication: HYPERTENSION
     Dosage: UNK UNK, QD
     Route: 065
  6. EXJADE [Suspect]
     Active Substance: DEFERASIROX
     Indication: SICKLE CELL ANAEMIA
     Dosage: 500 MG, QD
     Route: 048
     Dates: start: 20150519, end: 20160102
  7. PREDNISONE. [Concomitant]
     Active Substance: PREDNISONE
     Indication: PRODUCT USED FOR UNKNOWN INDICATION
     Route: 065
  8. B COMPLEX WITH FOLIC ACID [Concomitant]
     Indication: PRODUCT USED FOR UNKNOWN INDICATION
     Dosage: UNK UNK, QD
     Route: 065
  9. EXJADE [Suspect]
     Active Substance: DEFERASIROX
     Dosage: 500 MG, QOD (48 HOURS)
     Route: 048
     Dates: start: 20161223

REACTIONS (2)
  - Inappropriate schedule of drug administration [Unknown]
  - Renal disorder [Not Recovered/Not Resolved]

NARRATIVE: CASE EVENT DATE: 20160926
